FAERS Safety Report 6656981-9 (Version None)
Quarter: 2010Q1

REPORT INFORMATION
  Report Type: 
  Country: None (occurrence: None)
  Receive Date: 20100330
  Receipt Date: 20100322
  Transmission Date: 20100710
  Serious: Yes (Hospitalization)
  Sender: FDA-Public Use
  Company Number: 2008BI018630

PATIENT
  Sex: Female
  Weight: 90 kg

DRUGS (1)
  1. TYSABRI [Suspect]
     Indication: MULTIPLE SCLEROSIS
     Route: 042
     Dates: start: 20080118

REACTIONS (4)
  - ABDOMINAL PAIN [None]
  - BRONCHITIS [None]
  - CHOLELITHIASIS [None]
  - GALLBLADDER DISORDER [None]
